FAERS Safety Report 20119431 (Version 2)
Quarter: 2021Q4

REPORT INFORMATION
  Report Type: Spontaneous
  Country: GR (occurrence: None)
  Receive Date: 20211126
  Receipt Date: 20211214
  Transmission Date: 20220303
  Serious: Yes (Death)
  Sender: FDA-Public Use
  Company Number: GR-ROCHE-2961123

PATIENT
  Sex: Female

DRUGS (2)
  1. OCREVUS [Suspect]
     Active Substance: OCRELIZUMAB
     Indication: Primary progressive multiple sclerosis
     Dosage: 300 MF INFUSION, FOLLOWED BY SECOND INFUSION TWO WEEKS LATER
     Route: 042
     Dates: start: 20210607
  2. OCREVUS [Suspect]
     Active Substance: OCRELIZUMAB
     Route: 042
     Dates: start: 20211107

REACTIONS (6)
  - Pulmonary embolism [Fatal]
  - Fatigue [Unknown]
  - Bone pain [Unknown]
  - Pyrexia [Unknown]
  - Myalgia [Unknown]
  - Dyspnoea [Unknown]
